FAERS Safety Report 9895204 (Version 1)
Quarter: 2014Q1

REPORT INFORMATION
  Report Type: Spontaneous
  Country: US (occurrence: US)
  Receive Date: 20140213
  Receipt Date: 20140213
  Transmission Date: 20141002
  Serious: Yes (Hospitalization)
  Sender: FDA-Public Use
  Company Number: US-BRISTOL-MYERS SQUIBB COMPANY-19341361

PATIENT
  Age: 59 Year
  Sex: Female
  Weight: 63.04 kg

DRUGS (1)
  1. ABATACEPT SUBQ INJECTION 125MG/ML [Suspect]
     Indication: RHEUMATOID ARTHRITIS
     Dosage: ORENCIA IV START DT:MAR2011,LAST ADM BEFORE EVENT:JAN2013,INTERRUPTED:MAR2013,LAST ADM:21AUG13
     Route: 058
     Dates: start: 201111

REACTIONS (4)
  - Pharyngeal abscess [Unknown]
  - Eye disorder [Unknown]
  - Weight decreased [Unknown]
  - Aphagia [Unknown]
